FAERS Safety Report 10945174 (Version 2)
Quarter: 2015Q1

REPORT INFORMATION
  Report Type: Spontaneous
  Country: US (occurrence: None)
  Receive Date: 20150212
  Receipt Date: 20150212
  Transmission Date: 20150721
  Serious: No
  Sender: FDA-Public Use
  Company Number: TPA2011A03560

PATIENT
  Age: 68 Year
  Sex: Female
  Weight: 145.15 kg

DRUGS (1)
  1. ULORIC [Suspect]
     Active Substance: FEBUXOSTAT
     Dosage: 40 MG, 1 IN 1 D
     Dates: start: 20110524, end: 20110614

REACTIONS (2)
  - Rash [None]
  - Pruritus [None]
